FAERS Safety Report 5000008-1 (Version None)
Quarter: 2006Q2

REPORT INFORMATION
  Report Type: 
  Country: None (occurrence: None)
  Receive Date: 20060510
  Receipt Date: 20060510
  Transmission Date: 20061013
  Serious: Yes (Life-Threatening)
  Sender: FDA-Public Use
  Company Number: None

PATIENT
  Age: 22 Year
  Sex: Female
  Weight: 45 kg

DRUGS (8)
  1. VANCOMYCIN [Suspect]
     Indication: STAPHYLOCOCCAL INFECTION
     Dosage: 1 GRAM IV Q12HR
     Route: 042
     Dates: start: 20060305
  2. RANITIDINE [Concomitant]
  3. PROMETHAZINE [Concomitant]
  4. ONDANSETRON HCL [Concomitant]
  5. LANSOPRAZOLE [Concomitant]
  6. ACETAMINOPHEN [Concomitant]
  7. AMPICILLIN SODIUM/SULBACTAM SODIUM [Concomitant]
  8. METHYLPREDNISOLONE [Concomitant]

REACTIONS (5)
  - BLOOD PRESSURE DECREASED [None]
  - CONVULSION [None]
  - DRUG EXPOSURE DURING PREGNANCY [None]
  - DYSPNOEA [None]
  - FACE OEDEMA [None]
